FAERS Safety Report 5911200-3 (Version None)
Quarter: 2008Q4

REPORT INFORMATION
  Report Type: 
  Country: None (occurrence: None)
  Receive Date: 20081007
  Receipt Date: 20080711
  Transmission Date: 20090506
  Serious: No
  Sender: FDA-Public Use
  Company Number: US-BRISTOL-MYERS SQUIBB COMPANY-14262067

PATIENT

DRUGS (1)
  1. AVAPRO [Suspect]
     Dosage: 1 DOSAGEFORM = 300 IN AM  AND 1 DOSAGEFORM =  150 IN PM

REACTIONS (1)
  - HYPERTENSION [None]
